FAERS Safety Report 6987481-4 (Version None)
Quarter: 2010Q3

REPORT INFORMATION
  Report Type: 
  Country: None (occurrence: None)
  Receive Date: 20100916
  Receipt Date: 20100909
  Transmission Date: 20110219
  Serious: Yes (Death, Hospitalization, Other)
  Sender: FDA-Public Use
  Company Number: PHHY2010GB60807

PATIENT
  Age: 41 Year
  Sex: Male

DRUGS (2)
  1. CLOZAPINE [Suspect]
     Dosage: 750 MG/D
     Dates: start: 20040101
  2. LACTULOSE [Concomitant]

REACTIONS (31)
  - ABDOMINAL DISTENSION [None]
  - ANTIPSYCHOTIC DRUG LEVEL INCREASED [None]
  - ASPIRATION [None]
  - ASTHENIA [None]
  - BLOOD AMYLASE INCREASED [None]
  - BLOOD BICARBONATE DECREASED [None]
  - BLOOD LACTIC ACID INCREASED [None]
  - BRAIN OEDEMA [None]
  - C-REACTIVE PROTEIN INCREASED [None]
  - CELL DEATH [None]
  - CONSTIPATION [None]
  - CYANOSIS [None]
  - DIARRHOEA [None]
  - DIZZINESS [None]
  - EYES SUNKEN [None]
  - FEELING ABNORMAL [None]
  - HEART RATE INCREASED [None]
  - INTESTINAL DILATATION [None]
  - INTESTINAL HAEMORRHAGE [None]
  - LEUKOCYTOSIS [None]
  - LOSS OF CONSCIOUSNESS [None]
  - MALAISE [None]
  - METABOLIC ACIDOSIS [None]
  - MONOCYTOSIS [None]
  - NEUTROPHIL COUNT INCREASED [None]
  - PULMONARY CONGESTION [None]
  - PULMONARY HAEMORRHAGE [None]
  - PULMONARY OEDEMA [None]
  - SOMNOLENCE [None]
  - SPLEEN CONGESTION [None]
  - VOMITING [None]
